FAERS Safety Report 8125745-1 (Version None)
Quarter: 2012Q1

REPORT INFORMATION
  Report Type: 
  Country: None (occurrence: None)
  Receive Date: 20120209
  Receipt Date: 20120130
  Transmission Date: 20120608
  Serious: Yes (Other)
  Sender: FDA-Public Use
  Company Number: IE-ABBOTT-12P-229-0893463-00

PATIENT
  Sex: Female

DRUGS (3)
  1. CLARITHROMYCIN [Suspect]
     Indication: LOWER RESPIRATORY TRACT INFECTION
     Route: 048
     Dates: start: 20120107, end: 20120110
  2. CLARITHROMYCIN [Suspect]
     Dates: end: 20120111
  3. LEVOTHYROXINE SODIUM [Concomitant]
     Indication: HYPOTHYROIDISM
     Dosage: 125 MCG DAILY
     Route: 048
     Dates: start: 20010101

REACTIONS (10)
  - NAUSEA [None]
  - ERYTHEMA [None]
  - HOT FLUSH [None]
  - PARAESTHESIA ORAL [None]
  - SWELLING [None]
  - PRURITUS GENERALISED [None]
  - RASH PAPULAR [None]
  - PRURITUS [None]
  - RASH MACULAR [None]
  - DIZZINESS [None]
